FAERS Safety Report 19544150 (Version 1)
Quarter: 2021Q3

REPORT INFORMATION
  Report Type: Spontaneous
  Country: US (occurrence: US)
  Receive Date: 20210713
  Receipt Date: 20210713
  Transmission Date: 20211014
  Serious: Yes (Hospitalization, Other)
  Sender: FDA-Public Use
  Company Number: US-APOTEX-2021AP017051

PATIENT
  Age: 68 Year
  Sex: Female

DRUGS (9)
  1. PRAVASTATIN. [Suspect]
     Active Substance: PRAVASTATIN
     Indication: LIPIDS INCREASED
     Dosage: 20 MILLIGRAM
     Route: 065
  2. EZETIMIBE. [Concomitant]
     Active Substance: EZETIMIBE
     Indication: PRODUCT USED FOR UNKNOWN INDICATION
     Dosage: UNK
     Route: 065
  3. ASPIRIN [ACETYLSALICYLIC ACID] [Concomitant]
     Active Substance: ASPIRIN
     Indication: PRODUCT USED FOR UNKNOWN INDICATION
     Dosage: UNK
     Route: 065
  4. ATORVASTATIN [Suspect]
     Active Substance: ATORVASTATIN
     Dosage: 40 MILLIGRAM
     Route: 065
  5. ATORVASTATIN [Suspect]
     Active Substance: ATORVASTATIN
     Dosage: 80 MILLIGRAM
     Route: 065
  6. PRAVASTATIN. [Suspect]
     Active Substance: PRAVASTATIN
     Dosage: 40 MILLIGRAM
     Route: 065
  7. ATORVASTATIN [Suspect]
     Active Substance: ATORVASTATIN
     Indication: LIPIDS INCREASED
     Dosage: 80 MILLIGRAM
     Route: 065
  8. PRAVASTATIN. [Suspect]
     Active Substance: PRAVASTATIN
     Dosage: LOW?DOSE
     Route: 065
  9. CLOPIDOGREL [Concomitant]
     Active Substance: CLOPIDOGREL BISULFATE
     Indication: PRODUCT USED FOR UNKNOWN INDICATION
     Dosage: UNK
     Route: 065

REACTIONS (2)
  - Immune-mediated myositis [Recovering/Resolving]
  - Treatment noncompliance [Unknown]
